FAERS Safety Report 4610534-2 (Version None)
Quarter: 2005Q2

REPORT INFORMATION
  Report Type: 
  Country: None (occurrence: None)
  Receive Date: 20050228
  Receipt Date: 20050107
  Transmission Date: 20051028
  Serious: Yes (Other)
  Sender: FDA-Public Use
  Company Number: 240828

PATIENT
  Age: 77 Year
  Sex: Female

DRUGS (5)
  1. NOVOLIN N [Suspect]
     Indication: INSULIN-REQUIRING TYPE II DIABETES MELLITUS
     Dosage: 16 IU,QD, SUBCUTANEOUS
     Route: 058
     Dates: start: 20030101, end: 20041008
  2. NOVOLOG MIX 70/30 [Suspect]
     Indication: INSULIN-REQUIRING TYPE II DIABETES MELLITUS
     Dosage: 30 IU,BID; SUBCUTANEOUS
     Route: 058
     Dates: start: 20041008
  3. NOVOPEN 3 (INSULIN DELIVERY DEVICE) [Concomitant]
  4. COZAAR [Concomitant]
  5. LIPITOR [Concomitant]

REACTIONS (3)
  - DYSPNOEA [None]
  - RASH GENERALISED [None]
  - WHEEZING [None]
